FAERS Safety Report 6335304-9 (Version None)
Quarter: 2009Q3

REPORT INFORMATION
  Report Type: 
  Country: None (occurrence: None)
  Receive Date: 20090831
  Receipt Date: 20090820
  Transmission Date: 20100115
  Serious: Yes (Other)
  Sender: FDA-Public Use
  Company Number: US-JNJFOC-20090807383

PATIENT
  Age: 45 Year
  Sex: Female
  Weight: 63.5 kg

DRUGS (5)
  1. MONISTAT 3 COMB PCK TRIPLE ACTION-3 OV INSERTS W/3 APPL+EXT CRM + C/W [Suspect]
  2. MONISTAT 3 COMB PCK TRIPLE ACTION-3 OV INSERTS W/3 APPL+EXT CRM + C/W [Suspect]
     Indication: DRUG USE FOR UNKNOWN INDICATION
  3. MONISTAT 3 COMB PCK TRIPLE ACTION-3 OV INSERTS W/3 APPL+EXT CRM + C/W [Suspect]
     Route: 061
  4. MONISTAT 3 COMB PCK TRIPLE ACTION-3 OV INSERTS W/3 APPL+EXT CRM + C/W [Suspect]
     Route: 061
  5. LISINOPRIL [Concomitant]
     Route: 065

REACTIONS (2)
  - BLOOD URINE PRESENT [None]
  - DYSURIA [None]
